FAERS Safety Report 6716787-9 (Version None)
Quarter: 2010Q2

REPORT INFORMATION
  Report Type: 
  Country: None (occurrence: None)
  Receive Date: 20100510
  Receipt Date: 20100430
  Transmission Date: 20101027
  Serious: Yes (Hospitalization, Other)
  Sender: FDA-Public Use
  Company Number: US-BAYER-201021195NA

PATIENT
  Sex: Female

DRUGS (2)
  1. YAZ [Suspect]
     Indication: DRUG USE FOR UNKNOWN INDICATION
     Route: 048
     Dates: start: 20070722, end: 20070701
  2. PSYCHOTROPIC MEDICATIONS [Concomitant]

REACTIONS (4)
  - ANXIETY [None]
  - HOMICIDAL IDEATION [None]
  - PANIC ATTACK [None]
  - SUICIDAL IDEATION [None]
